FAERS Safety Report 20961674 (Version 3)
Quarter: 2022Q3

REPORT INFORMATION
  Report Type: Report from Study
  Country: US (occurrence: None)
  Receive Date: 20220615
  Receipt Date: 20220920
  Transmission Date: 20221027
  Serious: Yes (Hospitalization)
  Sender: FDA-Public Use
  Company Number: US-ROCHE-3114827

PATIENT
  Age: 69 Year
  Sex: Male
  Weight: 58.7 kg

DRUGS (2)
  1. ATEZOLIZUMAB [Suspect]
     Active Substance: ATEZOLIZUMAB
     Indication: Pancreatic carcinoma metastatic
     Dosage: DATE OF MOST RECENT DOSE PRIOR TO EVENT: 18/MAY/2022
     Route: 041
     Dates: start: 20220518
  2. CABOZANTINIB [Suspect]
     Active Substance: CABOZANTINIB
     Indication: Pancreatic carcinoma metastatic
     Dosage: DATE OF MOST RECENT DOSE PRIOR TO AE: 06/JUN/2022
     Route: 048
     Dates: start: 20220518

REACTIONS (1)
  - Sepsis [Recovered/Resolved]

NARRATIVE: CASE EVENT DATE: 20220607
